FAERS Safety Report 7491456-9 (Version None)
Quarter: 2011Q2

REPORT INFORMATION
  Report Type: 
  Country: None (occurrence: None)
  Receive Date: 20110519
  Receipt Date: 20110512
  Transmission Date: 20111010
  Serious: Yes (Other)
  Sender: FDA-Public Use
  Company Number: PHHY2011US41277

PATIENT
  Age: 68 Year
  Sex: Female
  Weight: 49.887 kg

DRUGS (1)
  1. TOBI [Suspect]
     Indication: ASTHMA
     Dosage: 300 MG, BID VIA NEBULISER IN A CYCLE OF 28 DAYS ON AND 28 DAYS OFF
     Dates: start: 20110303

REACTIONS (1)
  - PSEUDOMONAS INFECTION [None]
